FAERS Safety Report 9148954 (Version 1)
Quarter: 2013Q1

REPORT INFORMATION
  Report Type: Spontaneous
  Country: US (occurrence: None)
  Receive Date: 20130228
  Receipt Date: 20130228
  Transmission Date: 20140127
  Serious: Yes (Other)
  Sender: FDA-Public Use
  Company Number: None

PATIENT
  Age: 25 Year
  Sex: Female
  Weight: 66.23 kg

DRUGS (20)
  1. RESTASIS [Suspect]
     Indication: PROPHYLAXIS AGAINST GRAFT VERSUS HOST DISEASE
     Route: 047
     Dates: start: 20121129
  2. ACETAMINOPHEN [Concomitant]
  3. ACYCLOVIR [Concomitant]
  4. BECLOMETHASONE DIPROPIONATE [Concomitant]
  5. BIOTIN [Concomitant]
  6. BUDESONIDE [Concomitant]
  7. CALCIUM CARBONATE-VITAMIN D [Concomitant]
  8. CYCLOSPORINE [Concomitant]
  9. DOCUSATE SODIUM [Concomitant]
  10. FLUCONAZOLE [Concomitant]
  11. ETHINYL ESTRADIOL\LEVONORGESTREL [Concomitant]
  12. MAGNESIUM OXIDE [Concomitant]
  13. MULTIPLE VITAMINS [Concomitant]
  14. OMEPRAZOLE [Concomitant]
  15. PREDNISONE [Concomitant]
  16. SENNOSIDES [Concomitant]
  17. SODIUM FLUORIDE [Concomitant]
  18. SULFAMETHOXAZOLE-TRIMETHOPRIM [Concomitant]
  19. ZOLPIDEM TARTRATE [Concomitant]
  20. LORAZEPAM [Concomitant]

REACTIONS (1)
  - Leukaemia recurrent [None]
